FAERS Safety Report 8222295-9 (Version None)
Quarter: 2012Q1

REPORT INFORMATION
  Report Type: 
  Country: None (occurrence: None)
  Receive Date: 20120320
  Receipt Date: 20120316
  Transmission Date: 20120608
  Serious: Yes (Other)
  Sender: FDA-Public Use
  Company Number: JP-GLAXOSMITHKLINE-B0787101A

PATIENT
  Age: 12 Year
  Sex: Male
  Weight: 35 kg

DRUGS (2)
  1. RELENZA [Suspect]
     Indication: INFLUENZA
     Dosage: 20MG PER DAY
     Route: 055
     Dates: start: 20120223, end: 20120227
  2. ACETAMINOPHEN [Concomitant]
     Route: 048

REACTIONS (3)
  - ABNORMAL BEHAVIOUR [None]
  - DELIRIUM [None]
  - ANXIETY [None]
